FAERS Safety Report 18814670 (Version 2)
Quarter: 2021Q1

REPORT INFORMATION
  Report Type: Spontaneous
  Country: GB (occurrence: GB)
  Receive Date: 20210201
  Receipt Date: 20210302
  Transmission Date: 20210419
  Serious: Yes (Hospitalization)
  Sender: FDA-Public Use
  Company Number: GB-ACCORD-215850

PATIENT
  Age: 86 Year
  Sex: Female

DRUGS (8)
  1. BISOPROLOL [Concomitant]
     Active Substance: BISOPROLOL
  2. FELODIPINE. [Concomitant]
     Active Substance: FELODIPINE
  3. ACETYLSALICYLIC ACID [Concomitant]
     Active Substance: ASPIRIN
  4. LANSOPRAZOLE. [Concomitant]
     Active Substance: LANSOPRAZOLE
  5. ATORVASTATIN [Concomitant]
     Active Substance: ATORVASTATIN
  6. LOSARTAN. [Concomitant]
     Active Substance: LOSARTAN
  7. FUROSEMIDE. [Suspect]
     Active Substance: FUROSEMIDE
     Indication: PRODUCT USED FOR UNKNOWN INDICATION
     Route: 048
  8. HYDROXOCOBALAMIN [Concomitant]
     Active Substance: HYDROXOCOBALAMIN

REACTIONS (3)
  - Hypokalaemia [Recovered/Resolved]
  - Paraesthesia [Unknown]
  - Abnormal loss of weight [Unknown]

NARRATIVE: CASE EVENT DATE: 20201014
